FAERS Safety Report 13559240 (Version 1)
Quarter: 2017Q2

REPORT INFORMATION
  Report Type: Spontaneous
  Country: US (occurrence: US)
  Receive Date: 20170518
  Receipt Date: 20170518
  Transmission Date: 20170830
  Serious: Yes (Other)
  Sender: FDA-Public Use
  Company Number: US-SUN PHARMACEUTICAL INDUSTRIES LTD-2017US-140704

PATIENT
  Age: 57 Year
  Sex: Male

DRUGS (1)
  1. DEXAMETHASONE. [Suspect]
     Active Substance: DEXAMETHASONE
     Indication: METASTATIC NEOPLASM
     Dosage: HIGH DOSES OF DEXAMETHASONE
     Route: 065

REACTIONS (2)
  - Strongyloidiasis [Unknown]
  - Meningitis bacterial [Unknown]
